FAERS Safety Report 6311647-X (Version None)
Quarter: 2009Q3

REPORT INFORMATION
  Report Type: 
  Country: None (occurrence: None)
  Receive Date: 20090817
  Receipt Date: 20090803
  Transmission Date: 20100115
  Serious: Yes (Death, Hospitalization)
  Sender: FDA-Public Use
  Company Number: B0588603A

PATIENT
  Age: 84 Year
  Sex: Male

DRUGS (7)
  1. PREDNISOLONE [Suspect]
     Indication: T-CELL LYMPHOMA
     Route: 065
  2. ACYCLOVIR [Suspect]
     Indication: HERPES ZOSTER
     Route: 051
  3. VALACYCLOVIR [Suspect]
     Indication: DRUG USE FOR UNKNOWN INDICATION
     Route: 065
  4. CYCLOPHOSPHAMIDE [Concomitant]
  5. VINCRISTINE [Concomitant]
  6. RITUXIMAB [Concomitant]
     Indication: AUTOIMMUNE NEUTROPENIA
  7. FLUDARABINE PHOSPHATE [Concomitant]

REACTIONS (15)
  - ANAEMIA [None]
  - ANGIOPATHY [None]
  - BLISTER [None]
  - GENERAL PHYSICAL HEALTH DETERIORATION [None]
  - HERPES ZOSTER [None]
  - HYPOALBUMINAEMIA [None]
  - INFECTION [None]
  - NEUTROPENIA [None]
  - PAIN [None]
  - PRURITUS [None]
  - PURULENCE [None]
  - PYREXIA [None]
  - RESPIRATORY ARREST [None]
  - SKIN LESION [None]
  - STAPHYLOCOCCAL BACTERAEMIA [None]
